FAERS Safety Report 5962822-5 (Version None)
Quarter: 2008Q4

REPORT INFORMATION
  Report Type: 
  Country: None (occurrence: None)
  Receive Date: 20081119
  Receipt Date: 20081119
  Transmission Date: 20090506
  Serious: Yes (Hospitalization)
  Sender: FDA-Public Use
  Company Number: None

PATIENT
  Sex: Female
  Weight: 68.8 kg

DRUGS (4)
  1. ERBITUX [Suspect]
     Dosage: 1840 MG
  2. HYDROCODONE BITARTRATE + ACETAMINOPHEN [Concomitant]
  3. MS CONTIN [Concomitant]
  4. MORPHINE SULFATE [Concomitant]

REACTIONS (11)
  - ANAEMIA [None]
  - DEEP VEIN THROMBOSIS [None]
  - DIARRHOEA [None]
  - DYSURIA [None]
  - FLANK PAIN [None]
  - GASTRIC DILATATION [None]
  - INADEQUATE ANALGESIA [None]
  - INTESTINAL DILATATION [None]
  - MASS [None]
  - SMALL INTESTINAL OBSTRUCTION [None]
  - SUPERIOR MESENTERIC ARTERY SYNDROME [None]
